FAERS Safety Report 20016078 (Version 1)
Quarter: 2021Q4

REPORT INFORMATION
  Report Type: Spontaneous
  Country: US (occurrence: None)
  Receive Date: 20211102
  Receipt Date: 20211102
  Transmission Date: 20220303
  Serious: No
  Sender: FDA-Public Use
  Company Number: None

PATIENT
  Sex: Male

DRUGS (17)
  1. ABIRATERONE [Suspect]
     Active Substance: ABIRATERONE
     Indication: Prostate cancer
     Dosage: FREQUENCY : DAILY;?
     Route: 048
  2. ABIRATERONE [Suspect]
     Active Substance: ABIRATERONE
     Indication: Bone cancer
  3. PREDNISONE [Concomitant]
     Active Substance: PREDNISONE
  4. LUPRON [Concomitant]
     Active Substance: LEUPROLIDE ACETATE
  5. AMLODIPINE [Concomitant]
     Active Substance: AMLODIPINE BESYLATE
  6. ASPIRIN [Concomitant]
     Active Substance: ASPIRIN
  7. ATORVASTATIN [Concomitant]
     Active Substance: ATORVASTATIN
  8. VITAMINS [Concomitant]
     Active Substance: VITAMINS
  9. COLACE [Concomitant]
     Active Substance: DOCUSATE SODIUM
  10. FENOFIBRATE [Concomitant]
     Active Substance: FENOFIBRATE
  11. FISH OIL [Concomitant]
     Active Substance: FISH OIL
  12. LOSARTAN [Concomitant]
     Active Substance: LOSARTAN
  13. METFORMIN [Concomitant]
     Active Substance: METFORMIN HYDROCHLORIDE
  14. OMEPRAZOLE [Concomitant]
     Active Substance: OMEPRAZOLE
  15. TRICOR [Concomitant]
     Active Substance: FENOFIBRATE
  16. ONDANSETRON [Concomitant]
     Active Substance: ONDANSETRON
  17. ELIQUIS [Concomitant]
     Active Substance: APIXABAN

REACTIONS (2)
  - Diverticulitis [None]
  - Vertigo [None]
